FAERS Safety Report 6914756-7 (Version None)
Quarter: 2010Q3

REPORT INFORMATION
  Report Type: 
  Country: None (occurrence: None)
  Receive Date: 20100804
  Receipt Date: 20100726
  Transmission Date: 20110219
  Serious: Yes (Hospitalization)
  Sender: FDA-Public Use
  Company Number: 2010US002621

PATIENT
  Age: 79 Year
  Sex: Male

DRUGS (12)
  1. VESICARE [Suspect]
     Indication: HYPERTONIC BLADDER
     Dosage: 5 MG/D, ORAL; 10 MG, UID/QD, ORAL
     Route: 048
     Dates: start: 20070701, end: 20100623
  2. VESICARE [Suspect]
     Indication: HYPERTONIC BLADDER
     Dosage: 5 MG/D, ORAL; 10 MG, UID/QD, ORAL
     Route: 048
     Dates: start: 20100624
  3. COUMADIN [Suspect]
     Indication: PRODUCT USED FOR UNKNOWN INDICATION
  4. GLUCOSAMIN CHONDR (CHONDROITIN SULFATE, GLUCOSAMINE SULFATE) FORMULATI [Concomitant]
  5. GLUCOPHAGE (METFORMIN) FORMULATION UNKNOWN [Concomitant]
  6. ACTOS (PIOGLITAZONE) FORMULATION UNKNOWN [Concomitant]
  7. GLIBEZIDE (GLIPIZIDE) FORMULATION UNKNOWN [Concomitant]
  8. TOPROL XL (METOPROLOL SUCCINATE) FORMULATION UNKNOWN [Concomitant]
  9. ZETIA (EZETIMIBE) FORMULATION UNKNOWN [Concomitant]
  10. METOPROLOL (METOPROLOL) FORMULATION UNKNOWN [Concomitant]
  11. METFORMIN HCL [Concomitant]
  12. WARFARIN SODIUM (WARFARIN SODIUM) FORMULATION UNKNOWN [Concomitant]

REACTIONS (3)
  - BLADDER REPAIR [None]
  - POST PROCEDURAL HAEMORRHAGE [None]
  - POSTOPERATIVE THROMBOSIS [None]
